FAERS Safety Report 20761776 (Version 2)
Quarter: 2022Q2

REPORT INFORMATION
  Report Type: Report from Study
  Country: CR (occurrence: CR)
  Receive Date: 20220428
  Receipt Date: 20220603
  Transmission Date: 20220721
  Serious: Yes (Hospitalization)
  Sender: FDA-Public Use
  Company Number: CR-JNJFOC-20220441625

PATIENT
  Age: 34 Year
  Sex: Female

DRUGS (1)
  1. SPRAVATO [Suspect]
     Active Substance: ESKETAMINE
     Indication: Depression
     Dosage: ADMINISTRATION INTERVAL: 8 DAYS?FREQUENCY: ALSO REPORTED AS WEEKLY (ONCE A WEEK)
     Route: 045
     Dates: start: 20220322

REACTIONS (9)
  - Nephrolithiasis [Recovering/Resolving]
  - Dyspnoea [Unknown]
  - Mood altered [Unknown]
  - Insomnia [Unknown]
  - Pain [Unknown]
  - Decreased interest [Unknown]
  - Nausea [Unknown]
  - Depressed mood [Unknown]
  - Lethargy [Unknown]

NARRATIVE: CASE EVENT DATE: 20220101
